FAERS Safety Report 5862690-6 (Version None)
Quarter: 2008Q3

REPORT INFORMATION
  Report Type: 
  Country: None (occurrence: None)
  Receive Date: 20080828
  Receipt Date: 20080819
  Transmission Date: 20090109
  Serious: Yes (Hospitalization)
  Sender: FDA-Public Use
  Company Number: US-AMGEN-US277647

PATIENT
  Sex: Male
  Weight: 94.9 kg

DRUGS (10)
  1. ENBREL [Suspect]
     Indication: PSORIASIS
     Route: 058
     Dates: start: 20070223, end: 20080415
  2. ASPIRIN [Concomitant]
     Route: 048
  3. ZOCOR [Concomitant]
     Route: 048
  4. SEROQUEL [Concomitant]
     Route: 048
  5. VALIUM [Concomitant]
     Route: 048
  6. MULTI-VITAMINS [Concomitant]
  7. VITAMIN C AND E [Concomitant]
  8. FISH OIL [Concomitant]
  9. GINSENG [Concomitant]
  10. GLUCOSAMINE W/CHONDROITIN SULFATES [Concomitant]

REACTIONS (1)
  - NEUROPATHY PERIPHERAL [None]
